FAERS Safety Report 8476918-X (Version None)
Quarter: 2012Q2

REPORT INFORMATION
  Report Type: 
  Country: None (occurrence: None)
  Receive Date: 20120629
  Receipt Date: 20120621
  Transmission Date: 20120825
  Serious: No
  Sender: FDA-Public Use
  Company Number: US-BIOGENIDEC-2012BI022119

PATIENT
  Age: 43 Year
  Sex: Female

DRUGS (4)
  1. LIPID LOWERING MEDICATION [Concomitant]
     Indication: BLOOD CHOLESTEROL INCREASED
  2. TYSABRI [Suspect]
     Indication: MULTIPLE SCLEROSIS
     Route: 042
     Dates: start: 20100524, end: 20101001
  3. CROMOLYN SODIUM [Concomitant]
     Indication: MASTOCYTOSIS
  4. ZOFRAN [Concomitant]
     Indication: GASTROINTESTINAL MOTILITY DISORDER

REACTIONS (6)
  - MYALGIA [None]
  - FATIGUE [None]
  - DRUG EFFECT DECREASED [None]
  - VISUAL IMPAIRMENT [None]
  - BALANCE DISORDER [None]
  - MUSCLE SPASMS [None]
